FAERS Safety Report 21468528 (Version 1)
Quarter: 2022Q4

REPORT INFORMATION
  Report Type: Report from Study
  Country: US (occurrence: US)
  Receive Date: 20221017
  Receipt Date: 20221017
  Transmission Date: 20230113
  Serious: Yes (Other)
  Sender: FDA-Public Use
  Company Number: US-BEH-2022148730

PATIENT
  Age: 29 Year
  Sex: Female
  Weight: 99.773 kg

DRUGS (4)
  1. HAEGARDA [Suspect]
     Active Substance: HUMAN C1-ESTERASE INHIBITOR
     Indication: Hereditary angioedema
     Dosage: UNK UNK, BIW
     Route: 058
     Dates: start: 20220811
  2. HAEGARDA [Suspect]
     Active Substance: HUMAN C1-ESTERASE INHIBITOR
     Indication: Prophylaxis
     Dosage: UNK UNK, BIW
     Route: 058
     Dates: start: 20220815
  3. HAEGARDA [Suspect]
     Active Substance: HUMAN C1-ESTERASE INHIBITOR
     Indication: Off label use
     Dosage: UNK, BIW
     Route: 058
     Dates: start: 20220811
  4. HAEGARDA [Suspect]
     Active Substance: HUMAN C1-ESTERASE INHIBITOR
     Indication: Hereditary angioedema

REACTIONS (7)
  - Infusion site discolouration [Recovered/Resolved]
  - Infusion site pain [Recovered/Resolved]
  - Hereditary angioedema [Recovered/Resolved]
  - Fatigue [Not Recovered/Not Resolved]
  - Arthralgia [Not Recovered/Not Resolved]
  - Hereditary angioedema [Unknown]
  - Hereditary angioedema [Recovered/Resolved]

NARRATIVE: CASE EVENT DATE: 20220811
